FAERS Safety Report 5283513-2 (Version None)
Quarter: 2007Q2

REPORT INFORMATION
  Report Type: 
  Country: None (occurrence: None)
  Receive Date: 20070402
  Receipt Date: 20070328
  Transmission Date: 20071010
  Serious: Yes (Other)
  Sender: FDA-Public Use
  Company Number: 2007AP01871

PATIENT
  Age: 24 Year
  Sex: Female

DRUGS (2)
  1. SEROQUEL [Suspect]
     Dosage: 10 TABLETS
     Route: 048
  2. DIAZEPAM [Suspect]
     Dosage: 8 TABLETS

REACTIONS (1)
  - OVERDOSE [None]
